FAERS Safety Report 5528348-8 (Version None)
Quarter: 2007Q4

REPORT INFORMATION
  Report Type: 
  Country: None (occurrence: None)
  Receive Date: 20071121
  Receipt Date: 20071109
  Transmission Date: 20080405
  Serious: Yes (Life-Threatening, Hospitalization)
  Sender: FDA-Public Use
  Company Number: 02100-JPN-07-0662

PATIENT
  Age: 81 Year
  Sex: Male

DRUGS (7)
  1. CILOSTAZOL [Suspect]
     Indication: CEREBRAL INFARCTION
     Dosage: 200 MG ORAL
     Route: 048
     Dates: end: 20070927
  2. ACETAMINOPHEN [Suspect]
     Indication: PYREXIA
     Dosage: 600 MG RECTAL
     Route: 054
     Dates: start: 20070924, end: 20070924
  3. WARFARIN POTASSIUM [Concomitant]
  4. ATENOLOL [Concomitant]
  5. AMLODIPINE BESYLATE [Concomitant]
  6. DISOPYRAMIDE [Concomitant]
  7. SULBACTAM SODIUM/AMPICILIN SODIUM [Concomitant]

REACTIONS (9)
  - ANAEMIA [None]
  - DISEASE RECURRENCE [None]
  - DISSEMINATED INTRAVASCULAR COAGULATION [None]
  - HEPATIC FUNCTION ABNORMAL [None]
  - PLATELET COUNT DECREASED [None]
  - PNEUMONIA [None]
  - RHABDOMYOLYSIS [None]
  - SHOCK [None]
  - WHITE BLOOD CELL COUNT INCREASED [None]
